FAERS Safety Report 9764579 (Version 3)
Quarter: 2014Q1

REPORT INFORMATION
  Report Type: Spontaneous
  Country: IT (occurrence: IT)
  Receive Date: 20131217
  Receipt Date: 20140219
  Transmission Date: 20141002
  Serious: Yes (Other)
  Sender: FDA-Public Use
  Company Number: IT-RANBAXY-2013RR-75836

PATIENT
  Age: 84 Year
  Sex: Male

DRUGS (5)
  1. AMOXICILLIN [Suspect]
     Indication: PRODUCT USED FOR UNKNOWN INDICATION
     Dosage: 1 G/DAY
     Route: 048
     Dates: start: 20120720, end: 20120721
  2. XATRAL [Concomitant]
     Indication: BENIGN PROSTATIC HYPERPLASIA
     Dosage: UNK
     Route: 065
  3. TAPAZOLE [Concomitant]
     Indication: HYPERTHYROIDISM
     Dosage: 1 DF, UNK
     Route: 065
  4. PANTORC [Concomitant]
     Indication: PRODUCT USED FOR UNKNOWN INDICATION
     Dosage: 1 DF, UNK
     Route: 065
  5. RAMIPRIL [Concomitant]
     Indication: ESSENTIAL HYPERTENSION
     Dosage: 1 DF, UNK
     Route: 065

REACTIONS (2)
  - Lip oedema [Recovering/Resolving]
  - Hypersensitivity [Recovering/Resolving]
